FAERS Safety Report 16861379 (Version 1)
Quarter: 2019Q3

REPORT INFORMATION
  Report Type: Spontaneous
  Country: GB (occurrence: GB)
  Receive Date: 20190927
  Receipt Date: 20190927
  Transmission Date: 20191005
  Serious: Yes (Other)
  Sender: FDA-Public Use
  Company Number: GB-MYLANLABS-2019M1089771

PATIENT
  Age: 81 Year
  Sex: Male
  Weight: 112 kg

DRUGS (9)
  1. ATORVASTATIN [Concomitant]
     Active Substance: ATORVASTATIN
     Dosage: 1 DOSAGE FORM, QD, NIGHT.
     Dates: start: 20021016
  2. RAMIPRIL. [Concomitant]
     Active Substance: RAMIPRIL
     Dosage: 1 DOSAGE FORM, QD, MORNING
     Dates: start: 20161121
  3. PIOGLITAZONE. [Suspect]
     Active Substance: PIOGLITAZONE
     Indication: PRODUCT USED FOR UNKNOWN INDICATION
     Dosage: 15 MILLIGRAM, QD
     Route: 065
     Dates: start: 20190102
  4. DOXAZOSIN [Concomitant]
     Active Substance: DOXAZOSIN MESYLATE
     Dosage: 4 DOSAGE FORM, QD, MORNING AND EVENING
     Dates: start: 20061109
  5. TILDIEM [Concomitant]
     Active Substance: DILTIAZEM HYDROCHLORIDE
     Dosage: 1 DOSAGE FORM, QD, MORNING
     Dates: start: 20120928
  6. INDAPAMIDE. [Concomitant]
     Active Substance: INDAPAMIDE
     Dosage: 1 DOSAGE FORM, QD, MORNING
     Dates: start: 20150810, end: 20190221
  7. GLICLAZIDE [Concomitant]
     Active Substance: GLICLAZIDE
     Dosage: 1 DOSAGE FORM, QD, BEFORE FOOD
     Dates: start: 20110610
  8. ALLOPURINOL. [Concomitant]
     Active Substance: ALLOPURINOL
     Dosage: 1 DOSAGE FORM, QD, PREFERABLY AFTER FOOD
     Dates: start: 20190102
  9. SILDENAFIL. [Concomitant]
     Active Substance: SILDENAFIL
     Dosage: UNK, USE AS DIRECTED
     Dates: start: 20080624

REACTIONS (3)
  - Drug ineffective [Unknown]
  - Abnormal weight gain [Unknown]
  - Memory impairment [Unknown]

NARRATIVE: CASE EVENT DATE: 20190102
